FAERS Safety Report 25065112 (Version 1)
Quarter: 2025Q1

REPORT INFORMATION
  Report Type: Spontaneous
  Country: CN (occurrence: CN)
  Receive Date: 20250311
  Receipt Date: 20250311
  Transmission Date: 20250409
  Serious: Yes (Other)
  Sender: PFIZER
  Company Number: CN-PFIZER INC-PV202500027849

PATIENT
  Age: 35 Year
  Sex: Male

DRUGS (2)
  1. METHYLPREDNISOLONE SODIUM SUCCINATE [Suspect]
     Active Substance: METHYLPREDNISOLONE SODIUM SUCCINATE
     Indication: Urticaria
     Route: 041
     Dates: start: 20191125, end: 20191125
  2. POTASSIUM CHLORIDE [Concomitant]
     Active Substance: POTASSIUM CHLORIDE
     Dosage: 500 MG, 2X/DAY
     Route: 048
     Dates: start: 20191125

REACTIONS (1)
  - Familial periodic paralysis [Recovered/Resolved]

NARRATIVE: CASE EVENT DATE: 20191125
